FAERS Safety Report 6994551-3 (Version None)
Quarter: 2010Q3

REPORT INFORMATION
  Report Type: 
  Country: None (occurrence: None)
  Receive Date: 20100915
  Receipt Date: 20100915
  Transmission Date: 20110219
  Serious: Yes (Hospitalization)
  Sender: FDA-Public Use
  Company Number: None

PATIENT
  Sex: Male
  Weight: 94 kg

DRUGS (6)
  1. DAUNORUBICIN HCL [Suspect]
     Dosage: 110 MG
  2. METHOTREXATE [Suspect]
     Dosage: 15 MG
  3. METHYLPREDNISOLONE [Suspect]
     Dosage: 1560 MG
  4. PEG-L-ASPARAGINASE (K-H) [Suspect]
     Dosage: 5475 IU
  5. VINCRISTINE SULFATE [Suspect]
     Dosage: 4 MG
  6. CYTARABINE [Suspect]
     Dosage: 70 MG

REACTIONS (14)
  - ARTHRALGIA [None]
  - ASTHENIA [None]
  - BLOOD BILIRUBIN INCREASED [None]
  - BLOOD CULTURE POSITIVE [None]
  - HYPOALBUMINAEMIA [None]
  - HYPONATRAEMIA [None]
  - LUNG NEOPLASM [None]
  - MYALGIA [None]
  - MYOSITIS [None]
  - OEDEMA PERIPHERAL [None]
  - PNEUMONIA FUNGAL [None]
  - RESPIRATORY DISTRESS [None]
  - SEPSIS [None]
  - STAPHYLOCOCCAL INFECTION [None]
